FAERS Safety Report 8521036-5 (Version None)
Quarter: 2012Q3

REPORT INFORMATION
  Report Type: 
  Country: None (occurrence: None)
  Receive Date: 20120712
  Receipt Date: 20120712
  Transmission Date: 20120928
  Serious: Yes (Other)
  Sender: FDA-Public Use
  Company Number: None

PATIENT
  Sex: Female

DRUGS (1)
  1. BOTOX [Suspect]
     Indication: SKIN WRINKLING
     Dosage: 4 INJECTIONS ID
     Route: 023

REACTIONS (3)
  - EYELID DISORDER [None]
  - VISION BLURRED [None]
  - SENSATION OF HEAVINESS [None]
